FAERS Safety Report 14852930 (Version 1)
Quarter: 2018Q2

REPORT INFORMATION
  Report Type: Spontaneous
  Country: US (occurrence: US)
  Receive Date: 20180507
  Receipt Date: 20180507
  Transmission Date: 20180711
  Serious: Yes (Other)
  Sender: FDA-Public Use
  Company Number: US-PFIZER INC-2018186218

PATIENT
  Age: 76 Year
  Sex: Male
  Weight: 64.7 kg

DRUGS (3)
  1. AMIKACIN SULFATE. [Suspect]
     Active Substance: AMIKACIN SULFATE
     Indication: MYCOBACTERIAL INFECTION
     Dosage: 500 MG, 2X/DAY
     Dates: start: 20180312
  2. TYGACIL [Suspect]
     Active Substance: TIGECYCLINE
     Indication: MYCOBACTERIAL INFECTION
     Dosage: 500 MG, 2X/DAY
     Route: 042
     Dates: start: 20180312, end: 201804
  3. PRIMAXIN IV [Suspect]
     Active Substance: CILASTATIN SODIUM\IMIPENEM
     Indication: MYCOBACTERIAL INFECTION
     Dosage: 500 MG, 2X/DAY
     Route: 042
     Dates: start: 20180312, end: 201804

REACTIONS (2)
  - Hypersensitivity [Recovered/Resolved]
  - Rash generalised [Recovered/Resolved]
